FAERS Safety Report 18067214 (Version 2)
Quarter: 2022Q3

REPORT INFORMATION
  Report Type: Spontaneous
  Country: US (occurrence: US)
  Receive Date: 20200724
  Receipt Date: 20220804
  Transmission Date: 20221026
  Serious: Yes (Death, Hospitalization, Other)
  Sender: FDA-Public Use
  Company Number: US-PURDUE-USA-2020-0159027

PATIENT
  Sex: Female

DRUGS (2)
  1. HYDROCODONE BITARTRATE AND ACETAMINOPHEN [Suspect]
     Active Substance: ACETAMINOPHEN\HYDROCODONE BITARTRATE
     Indication: Pain
     Dosage: UNKNOWN
     Route: 048
  2. ACETAMINOPHEN\OXYCODONE HYDROCHLORIDE [Suspect]
     Active Substance: ACETAMINOPHEN\OXYCODONE HYDROCHLORIDE
     Indication: Pain
     Dosage: UNKNOWN
     Route: 048

REACTIONS (15)
  - Death [Fatal]
  - Coma [Unknown]
  - Skull fracture [Unknown]
  - Memory impairment [Unknown]
  - Seizure [Unknown]
  - Epilepsy [Unknown]
  - Haemorrhage [Unknown]
  - Drug dependence [Unknown]
  - Fall [Unknown]
  - Head injury [Unknown]
  - Anosmia [Unknown]
  - Ageusia [Unknown]
  - Nerve injury [Unknown]
  - Learning disability [Unknown]
  - Developmental delay [Unknown]

NARRATIVE: CASE EVENT DATE: 20050101
